FAERS Safety Report 14764419 (Version 3)
Quarter: 2018Q2

REPORT INFORMATION
  Report Type: Spontaneous
  Country: US (occurrence: US)
  Receive Date: 20180416
  Receipt Date: 20180618
  Transmission Date: 20180711
  Serious: Yes (Life-Threatening, Hospitalization, Other)
  Sender: FDA-Public Use
  Company Number: US-SA-2018SA034716

PATIENT
  Age: 49 Year
  Sex: Female

DRUGS (40)
  1. VALPROIC ACID. [Interacting]
     Active Substance: VALPROIC ACID
     Dosage: 1250 MG, QD
  2. LORAZEPAM. [Suspect]
     Active Substance: LORAZEPAM
     Dosage: 3 MG,PRN
     Route: 042
  3. DIPHENHYDRAMINE. [Suspect]
     Active Substance: DIPHENHYDRAMINE
     Indication: SCHIZOAFFECTIVE DISORDER
     Dosage: 25 MG,PRN
     Route: 042
  4. FLUPHENAZINE DECANOATE. [Suspect]
     Active Substance: FLUPHENAZINE DECANOATE
     Dosage: 15 MG,Q12H
     Route: 065
  5. HALOPERIDOL. [Suspect]
     Active Substance: HALOPERIDOL
     Dosage: 2.5 MG,QD
     Route: 065
  6. BENZTROPINE MESYLATE. [Concomitant]
     Active Substance: BENZTROPINE MESYLATE
     Dosage: 2 MG,BID
  7. VALPROIC ACID. [Interacting]
     Active Substance: VALPROIC ACID
     Dosage: 1000 MG,QD
     Route: 065
  8. VALPROIC ACID. [Interacting]
     Active Substance: VALPROIC ACID
     Dosage: 500 MG, QD
     Route: 065
  9. RISPERIDONE. [Suspect]
     Active Substance: RISPERIDONE
     Indication: SCHIZOAFFECTIVE DISORDER BIPOLAR TYPE
     Dosage: 2 MG,BID
     Route: 065
  10. CHLORPROMAZINE. [Suspect]
     Active Substance: CHLORPROMAZINE
     Dosage: 50 MG,Q8H
     Route: 065
  11. LORAZEPAM. [Suspect]
     Active Substance: LORAZEPAM
     Dosage: 2 MG,UNK
     Route: 065
  12. DIPHENHYDRAMINE. [Suspect]
     Active Substance: DIPHENHYDRAMINE
     Dosage: 50 MG,UNK
     Route: 065
  13. HALOPERIDOL. [Suspect]
     Active Substance: HALOPERIDOL
     Dosage: 2 MG, PRN
     Route: 042
  14. CLOZAPINE. [Interacting]
     Active Substance: CLOZAPINE
     Indication: SCHIZOAFFECTIVE DISORDER BIPOLAR TYPE
     Dosage: 25 MG,QD
     Route: 065
  15. RISPERIDONE. [Suspect]
     Active Substance: RISPERIDONE
     Dosage: 12 MG,BID
     Route: 065
  16. LORAZEPAM. [Suspect]
     Active Substance: LORAZEPAM
     Dosage: 6 MG,PRN
     Route: 042
  17. LORAZEPAM. [Suspect]
     Active Substance: LORAZEPAM
     Dosage: 5 MG,PRN
     Route: 042
  18. HALOPERIDOL. [Suspect]
     Active Substance: HALOPERIDOL
     Indication: SCHIZOAFFECTIVE DISORDER BIPOLAR TYPE
     Dosage: 4 MG,PRN
     Route: 042
  19. SERTRALINE [Concomitant]
     Active Substance: SERTRALINE HYDROCHLORIDE
     Dosage: 100 MG,QD
     Route: 065
  20. BENZTROPINE MESYLATE. [Concomitant]
     Active Substance: BENZTROPINE MESYLATE
     Dosage: 12 MG,BID
     Route: 065
  21. CLOZAPINE. [Interacting]
     Active Substance: CLOZAPINE
     Dosage: 50 MG,QD
     Route: 065
  22. VALPROIC ACID. [Interacting]
     Active Substance: VALPROIC ACID
     Dosage: 500 MG,QD
     Route: 065
  23. RISPERIDONE. [Suspect]
     Active Substance: RISPERIDONE
     Dosage: 1 MG,BID
     Route: 065
  24. RISPERIDONE. [Suspect]
     Active Substance: RISPERIDONE
     Dosage: 4 MG, QD
  25. CLOZAPINE. [Interacting]
     Active Substance: CLOZAPINE
     Dosage: 150 MG,QD
     Route: 065
  26. CLOZAPINE. [Interacting]
     Active Substance: CLOZAPINE
     Dosage: 500 MG,QD
     Route: 065
  27. VALPROIC ACID. [Interacting]
     Active Substance: VALPROIC ACID
     Dosage: 1000 MG,QD
     Route: 065
  28. FLUPHENAZINE DECANOATE. [Suspect]
     Active Substance: FLUPHENAZINE DECANOATE
     Indication: SCHIZOAFFECTIVE DISORDER BIPOLAR TYPE
     Dosage: 5 MG,QD
     Route: 065
  29. HALOPERIDOL. [Suspect]
     Active Substance: HALOPERIDOL
     Dosage: 5 MG
     Route: 065
  30. CLOZAPINE. [Interacting]
     Active Substance: CLOZAPINE
     Dosage: 200 MG,QD
     Route: 065
  31. CLOZAPINE. [Interacting]
     Active Substance: CLOZAPINE
     Dosage: 400 MG,QD
     Route: 065
  32. LORAZEPAM. [Suspect]
     Active Substance: LORAZEPAM
     Dosage: 4 MG,PRN
     Route: 042
  33. RISPERDAL CONSTA [Suspect]
     Active Substance: RISPERIDONE
     Indication: SCHIZOAFFECTIVE DISORDER BIPOLAR TYPE
     Dosage: 50 MG,QOW
     Route: 030
  34. CLOZAPINE. [Interacting]
     Active Substance: CLOZAPINE
     Dosage: 100 MG,QD
     Route: 065
  35. CLOZAPINE. [Interacting]
     Active Substance: CLOZAPINE
     Dosage: 300 MG,QD
     Route: 065
  36. VALPROIC ACID. [Interacting]
     Active Substance: VALPROIC ACID
     Indication: SCHIZOAFFECTIVE DISORDER BIPOLAR TYPE
     Dosage: 500 MG,Q12H
     Route: 065
  37. BENZTROPINE MESYLATE. [Concomitant]
     Active Substance: BENZTROPINE MESYLATE
     Indication: SCHIZOAFFECTIVE DISORDER BIPOLAR TYPE
     Dosage: 1 MG,BID
     Route: 065
  38. OLANZAPINE. [Suspect]
     Active Substance: OLANZAPINE
     Indication: SCHIZOAFFECTIVE DISORDER BIPOLAR TYPE
     Dosage: 10 MG,UNK
     Route: 030
  39. CHLORPROMAZINE. [Suspect]
     Active Substance: CHLORPROMAZINE
     Dosage: 50 MG,Q6H
     Route: 065
  40. HALOPERIDOL. [Suspect]
     Active Substance: HALOPERIDOL
     Dosage: 2.5 MG
     Route: 065

REACTIONS (23)
  - Loss of consciousness [Unknown]
  - Tachypnoea [Recovering/Resolving]
  - Myocardial necrosis marker increased [Recovering/Resolving]
  - Drug ineffective [Unknown]
  - Atrial fibrillation [Recovering/Resolving]
  - Pyrexia [Recovering/Resolving]
  - Cough [Recovering/Resolving]
  - Pneumonia aspiration [Recovering/Resolving]
  - Sedation [Recovering/Resolving]
  - Salivary hypersecretion [Recovering/Resolving]
  - Agitation [Unknown]
  - Drug interaction [Unknown]
  - Myocarditis [Unknown]
  - Sepsis [Recovering/Resolving]
  - Torsade de pointes [Recovered/Resolved]
  - Electrocardiogram QT prolonged [Recovered/Resolved]
  - Cardiac arrest [Recovered/Resolved]
  - Prescribed underdose [Unknown]
  - Aggression [Unknown]
  - Psychotic disorder [Unknown]
  - Metabolic disorder [Recovered/Resolved]
  - Arrhythmia [Unknown]
  - Hypotension [Recovering/Resolving]
